FAERS Safety Report 14508499 (Version 8)
Quarter: 2023Q4

REPORT INFORMATION
  Report Type: Spontaneous
  Country: BR (occurrence: BR)
  Receive Date: 20180209
  Receipt Date: 20231030
  Transmission Date: 20240110
  Serious: Yes (Hospitalization)
  Sender: FDA-Public Use
  Company Number: BR-BIOGEN-2017BI00465527

PATIENT
  Sex: Female
  Weight: 50 kg

DRUGS (20)
  1. AVONEX PEN [Suspect]
     Active Substance: INTERFERON BETA-1A
     Indication: Multiple sclerosis
     Route: 050
     Dates: start: 200303, end: 201605
  2. AVONEX PEN [Suspect]
     Active Substance: INTERFERON BETA-1A
     Route: 050
     Dates: start: 200402, end: 201604
  3. AVONEX PEN [Suspect]
     Active Substance: INTERFERON BETA-1A
     Route: 050
     Dates: start: 20040328
  4. AVONEX PEN [Suspect]
     Active Substance: INTERFERON BETA-1A
     Route: 050
     Dates: start: 2005, end: 20160401
  5. AVONEX PEN [Suspect]
     Active Substance: INTERFERON BETA-1A
     Route: 050
     Dates: end: 20160401
  6. AVONEX PEN [Suspect]
     Active Substance: INTERFERON BETA-1A
     Route: 050
     Dates: start: 200405
  7. OMEPRAZOLE [Concomitant]
     Active Substance: OMEPRAZOLE
     Indication: Prophylaxis
     Route: 050
  8. INDERAL [Concomitant]
     Active Substance: PROPRANOLOL HYDROCHLORIDE
     Indication: Product used for unknown indication
     Route: 050
  9. ZART H 50 + 12 [Concomitant]
     Indication: Hypertension
     Dosage: 50+12MG
     Route: 050
  10. VITAMIN C [Concomitant]
     Active Substance: ASCORBIC ACID
     Indication: Product used for unknown indication
     Route: 050
  11. VITAMIN D [Concomitant]
     Active Substance: VITAMIN D NOS
     Indication: Product used for unknown indication
     Route: 050
  12. Torlos H (potassic losartan + hydrochlorothiazide) [Concomitant]
     Indication: Product used for unknown indication
     Route: 050
  13. TARGIFOR C [Concomitant]
     Indication: Product used for unknown indication
     Route: 050
  14. Tebonin (ginkgo biloba) [Concomitant]
     Indication: Product used for unknown indication
     Route: 050
  15. Tebonin (ginkgo biloba) [Concomitant]
     Route: 050
     Dates: start: 201806
  16. ALPRAZOLAM [Concomitant]
     Active Substance: ALPRAZOLAM
     Indication: Product used for unknown indication
     Route: 050
     Dates: start: 2004, end: 201604
  17. HYDROXYZINE HYDROCHLORIDE [Concomitant]
     Active Substance: HYDROXYZINE HYDROCHLORIDE
     Indication: Product used for unknown indication
     Route: 050
  18. RESCUE [Concomitant]
     Indication: Product used for unknown indication
     Route: 050
  19. PAROXETINE [Concomitant]
     Active Substance: PAROXETINE
     Indication: Tremor
     Route: 050
     Dates: start: 2023
  20. DIAZEPAM [Concomitant]
     Active Substance: DIAZEPAM
     Indication: Sedative therapy
     Route: 050
     Dates: start: 2004

REACTIONS (5)
  - Multiple sclerosis relapse [Recovered/Resolved]
  - Hypertension [Unknown]
  - Bipolar disorder [Not Recovered/Not Resolved]
  - Platelet count increased [Unknown]
  - Drug ineffective [Recovered/Resolved]

NARRATIVE: CASE EVENT DATE: 20040101
